FAERS Safety Report 7350700-9 (Version None)
Quarter: 2011Q1

REPORT INFORMATION
  Report Type: 
  Country: None (occurrence: None)
  Receive Date: 20110314
  Receipt Date: 20110303
  Transmission Date: 20110831
  Serious: Yes (Hospitalization)
  Sender: FDA-Public Use
  Company Number: CA-JNJFOC-20110303257

PATIENT
  Sex: Male
  Weight: 64 kg

DRUGS (2)
  1. REMICADE [Suspect]
     Indication: COLITIS ULCERATIVE
     Route: 042
  2. HYDROCORTISONE [Concomitant]
     Indication: PREMEDICATION

REACTIONS (3)
  - RASH ERYTHEMATOUS [None]
  - ARTHRALGIA [None]
  - RENAL FAILURE [None]
